FAERS Safety Report 4822876-6 (Version None)
Quarter: 2005Q4

REPORT INFORMATION
  Report Type: 
  Country: None (occurrence: None)
  Receive Date: 20051108
  Receipt Date: 20051027
  Transmission Date: 20060501
  Serious: Yes (Disabling)
  Sender: FDA-Public Use
  Company Number: JP-BRISTOL-MYERS SQUIBB COMPANY-13161807

PATIENT
  Age: 53 Year
  Sex: Male

DRUGS (8)
  1. ZERIT [Suspect]
     Indication: HIV INFECTION
     Route: 048
     Dates: start: 20031216, end: 20040812
  2. STOCRIN [Concomitant]
     Route: 048
     Dates: start: 20031216
  3. EPIVIR [Concomitant]
     Route: 048
     Dates: start: 20031216
  4. RETROVIR [Concomitant]
     Route: 048
     Dates: start: 20040813
  5. COTRIM [Concomitant]
     Dosage: INTERRUPTED ON 14-JAN-2004, RESTARTED ON 15-JAN-2004
     Route: 048
     Dates: start: 20030918
  6. ZITHROMAC [Concomitant]
     Route: 048
     Dates: start: 20031006, end: 20040813
  7. ESANBUTOL [Concomitant]
     Route: 048
     Dates: start: 20031006
  8. PARIET [Concomitant]
     Route: 048
     Dates: start: 20040512

REACTIONS (1)
  - HYPOAESTHESIA [None]
